FAERS Safety Report 6388146-2 (Version None)
Quarter: 2009Q4

REPORT INFORMATION
  Report Type: 
  Country: None (occurrence: None)
  Receive Date: 20091001
  Receipt Date: 20091001
  Transmission Date: 20100525
  Serious: Yes (Other)
  Sender: FDA-Public Use
  Company Number: None

PATIENT
  Sex: Female
  Weight: 63 kg

DRUGS (1)
  1. JANUVIA [Suspect]
     Indication: TYPE 2 DIABETES MELLITUS
     Dosage: 25MG/1 TAB EVERY DAY ORAL
     Route: 048

REACTIONS (4)
  - DYSPNOEA [None]
  - EXERCISE TOLERANCE DECREASED [None]
  - MYALGIA [None]
  - SOMNOLENCE [None]
